FAERS Safety Report 7533371-8 (Version None)
Quarter: 2011Q2

REPORT INFORMATION
  Report Type: 
  Country: None (occurrence: None)
  Receive Date: 20110608
  Receipt Date: 20110516
  Transmission Date: 20111010
  Serious: Yes (Other)
  Sender: FDA-Public Use
  Company Number: US-BAYER-201037464NA

PATIENT
  Sex: Female
  Weight: 56.689 kg

DRUGS (6)
  1. PSEUDOVENT [Concomitant]
     Dosage: UNK
     Dates: start: 20070701
  2. PHENERGAN HCL [Concomitant]
  3. YAZ [Suspect]
     Indication: PRODUCT USED FOR UNKNOWN INDICATION
     Route: 048
     Dates: start: 20070401, end: 20080701
  4. AZITHROMYCIN [Concomitant]
     Dosage: UNK
     Dates: start: 20070701
  5. TRAMADOL HCL [Concomitant]
     Dosage: 37.5 MG, UNK
     Dates: start: 20071001
  6. PROMETHAZINE [Concomitant]
     Dosage: 25 MG, UNK
     Dates: start: 20070701

REACTIONS (2)
  - PAIN [None]
  - GALLBLADDER DISORDER [None]
